FAERS Safety Report 10527549 (Version 1)
Quarter: 2014Q4

REPORT INFORMATION
  Report Type: Spontaneous
  Country: TR (occurrence: TR)
  Receive Date: 20141020
  Receipt Date: 20141020
  Transmission Date: 20150528
  Serious: Yes (Other)
  Sender: FDA-Public Use
  Company Number: TR-SA-2014SA140133

PATIENT
  Age: 80 Year
  Sex: Male

DRUGS (4)
  1. RIFAMPIN. [Concomitant]
     Active Substance: RIFAMPIN
     Route: 065
  2. ETHAMBUTOL [Concomitant]
     Active Substance: ETHAMBUTOL HYDROCHLORIDE
     Route: 065
  3. BCG FOR IMMUNOTHERAPY [Suspect]
     Active Substance: BACILLUS CALMETTE-GUERIN SUBSTRAIN TICE LIVE ANTIGEN
     Indication: IMMUNISATION
     Dosage: AFTER SIXTH INSTILLATION
     Route: 065
  4. ISONIAZID. [Concomitant]
     Active Substance: ISONIAZID
     Dosage: 300 MG/DAY
     Route: 065

REACTIONS (2)
  - Proctalgia [Recovered/Resolved]
  - Anal abscess [Recovered/Resolved]
